FAERS Safety Report 8026119-4 (Version None)
Quarter: 2012Q1

REPORT INFORMATION
  Report Type: 
  Country: None (occurrence: None)
  Receive Date: 20120105
  Receipt Date: 20110620
  Transmission Date: 20120608
  Serious: No
  Sender: FDA-Public Use
  Company Number: US-ABBOTT-11P-163-0734185-00

PATIENT
  Sex: Female
  Weight: 61.29 kg

DRUGS (7)
  1. LAMICTAL [Concomitant]
     Indication: DEPRESSION
  2. LIPITOR [Concomitant]
     Indication: BLOOD CHOLESTEROL INCREASED
  3. SYNTHROID [Suspect]
     Indication: THYROID FUNCTION TEST ABNORMAL
     Route: 048
     Dates: start: 20110214, end: 20110401
  4. SEROQUEL [Interacting]
     Indication: IMPULSIVE BEHAVIOUR
  5. VITAMIN D [Concomitant]
     Indication: VITAMIN SUPPLEMENTATION
  6. SEROQUEL [Interacting]
     Indication: SUICIDAL IDEATION
     Route: 048
     Dates: start: 20110201
  7. TOPAMAX [Concomitant]
     Indication: WEIGHT CONTROL

REACTIONS (4)
  - PRURITUS GENERALISED [None]
  - ALOPECIA [None]
  - DRUG INTERACTION [None]
  - HYPOAESTHESIA [None]
